FAERS Safety Report 6722340-3 (Version None)
Quarter: 2010Q2

REPORT INFORMATION
  Report Type: 
  Country: None (occurrence: None)
  Receive Date: 20100512
  Receipt Date: 20100504
  Transmission Date: 20101027
  Serious: Yes (Death)
  Sender: FDA-Public Use
  Company Number: GXKR2010US05018

PATIENT
  Age: 48 Year
  Sex: Male

DRUGS (4)
  1. FLUOXETINE [Suspect]
     Route: 065
  2. CHLORDIAZEPOXIDE (NGX) [Suspect]
  3. OXYMORPHONE [Suspect]
     Route: 065
  4. ALCOHOL [Suspect]

REACTIONS (1)
  - DRUG TOXICITY [None]
